FAERS Safety Report 9792512 (Version 1)
Quarter: 2013Q4

REPORT INFORMATION
  Report Type: Spontaneous
  Country: GB (occurrence: None)
  Receive Date: 20131230
  Receipt Date: 20131230
  Transmission Date: 20140711
  Serious: Yes (Other)
  Sender: FDA-Public Use
  Company Number: GB-ALKEM-000449

PATIENT
  Age: 2 Decade
  Sex: Female

DRUGS (14)
  1. MYCOPHENOLATE MOFETIL [Suspect]
     Indication: LIVER TRANSPLANT
     Dosage: 1.00-G-2.00 TIMES PER 1.0 DAYS
     Route: 048
     Dates: start: 20080702
  2. TACROLIMUS [Suspect]
     Indication: LIVER TRANSPLANT
     Dosage: 0.50-MG-1.00 TIMES PER-1.0DAYS
     Route: 048
     Dates: start: 20080702
  3. VORICONAZOLE [Suspect]
     Indication: ASPERGILLUS INFECTION
     Route: 048
     Dates: start: 20130925, end: 201310
  4. PANCREATIN [Concomitant]
  5. COLECALCIFEROL [Concomitant]
  6. ASPIRIN [Concomitant]
  7. SALBUTAMOL [Concomitant]
  8. CETIRIZINE [Concomitant]
  9. INSULIN HUMAN [Concomitant]
  10. TOCOPHEROL [Concomitant]
  11. ACETYLCYSTEINE [Concomitant]
  12. BUDESONIDE W/FORMOTEROL [Concomitant]
  13. FUMARATE (BUDESONIDE W/FORMOTEROL FUMARATE) [Concomitant]
  14. RETINOL (RETINOL) [Concomitant]

REACTIONS (7)
  - Potentiating drug interaction [None]
  - Renal disorder [None]
  - Alopecia [None]
  - Skin exfoliation [None]
  - Stomatitis [None]
  - Lip pain [None]
  - Drug level increased [None]
